FAERS Safety Report 8800987 (Version 1)
Quarter: 2012Q4

REPORT INFORMATION
  Report Type: Report from Study
  Country: CH (occurrence: DE)
  Receive Date: 20120921
  Receipt Date: 20120921
  Transmission Date: 20130627
  Serious: Yes (Other)
  Sender: FDA-Public Use
  Company Number: DE-BRISTOL-MYERS SQUIBB COMPANY-16970139

PATIENT
  Age: 54 Year
  Sex: Male
  Weight: 72 kg

DRUGS (3)
  1. CETUXIMAB [Suspect]
     Indication: NON-SMALL CELL LUNG CANCER
     Dosage: no of inf:17,last dose on 11Apr2012
     Route: 042
     Dates: start: 20111221
  2. CISPLATIN FOR INJ [Suspect]
     Indication: NON-SMALL CELL LUNG CANCER
     Dosage: nof of inf:6
last dose:4Apr12
     Route: 042
     Dates: start: 20111221
  3. GEMCITABINE [Suspect]
     Indication: NON-SMALL CELL LUNG CANCER
     Dosage: no of inf:12
last dose:11Apr2012
day 1 and day 8 of each 3wk cycle
     Route: 042
     Dates: start: 20111221

REACTIONS (1)
  - Subclavian vein thrombosis [Recovered/Resolved]
